FAERS Safety Report 18079609 (Version 1)
Quarter: 2020Q3

REPORT INFORMATION
  Report Type: Spontaneous
  Country: IL (occurrence: IL)
  Receive Date: 20200728
  Receipt Date: 20200728
  Transmission Date: 20201103
  Serious: Yes (Hospitalization)
  Sender: FDA-Public Use
  Company Number: IL-TEVA-2020-IL-1806177

PATIENT
  Sex: Male

DRUGS (1)
  1. SILDENAFIL TEVA   100 MG [Suspect]
     Active Substance: SILDENAFIL CITRATE
     Indication: ERECTILE DYSFUNCTION
     Dosage: DOSE: 100

REACTIONS (2)
  - Urticaria [Unknown]
  - Rash [Unknown]
